FAERS Safety Report 11128101 (Version 2)
Quarter: 2015Q2

REPORT INFORMATION
  Report Type: Spontaneous
  Country: JP (occurrence: JP)
  Receive Date: 20150521
  Receipt Date: 20150527
  Transmission Date: 20150821
  Serious: Yes (Death)
  Sender: FDA-Public Use
  Company Number: JP-JNJFOC-20150512725

PATIENT
  Age: 8 Decade
  Sex: Female

DRUGS (2)
  1. DOXIL [Suspect]
     Active Substance: DOXORUBICIN HYDROCHLORIDE
     Indication: OVARIAN CANCER RECURRENT
     Route: 042
     Dates: start: 201406, end: 201410
  2. CARBOPLATIN. [Suspect]
     Active Substance: CARBOPLATIN
     Indication: OVARIAN CANCER RECURRENT
     Route: 065

REACTIONS (1)
  - Ovarian cancer recurrent [Fatal]
